FAERS Safety Report 5941008-4 (Version None)
Quarter: 2008Q4

REPORT INFORMATION
  Report Type: 
  Country: None (occurrence: None)
  Receive Date: 20081104
  Receipt Date: 20081027
  Transmission Date: 20090506
  Serious: Yes (Hospitalization)
  Sender: FDA-Public Use
  Company Number: FR-ASTRAZENECA-2008CG01568

PATIENT
  Age: 1035 Month
  Sex: Female

DRUGS (7)
  1. NEXIUM [Suspect]
     Route: 048
     Dates: start: 20030101
  2. VASTAREL [Suspect]
     Route: 048
     Dates: start: 20070101
  3. GANFORT [Suspect]
     Dosage: ONE DF DAILY
     Route: 047
     Dates: start: 20070101
  4. COZAAR [Suspect]
     Route: 048
     Dates: start: 20030101
  5. AMLODIPINE [Suspect]
     Route: 048
     Dates: start: 20030101
  6. KARDEGIC [Suspect]
     Route: 048
     Dates: start: 20030101
  7. BROMAZEPAM [Concomitant]

REACTIONS (2)
  - PEMPHIGOID [None]
  - PRURITUS [None]
